FAERS Safety Report 12104907 (Version 1)
Quarter: 2016Q1

REPORT INFORMATION
  Report Type: Spontaneous
  Country: GB (occurrence: GB)
  Receive Date: 20160223
  Receipt Date: 20160223
  Transmission Date: 20160526
  Serious: Yes (Other)
  Sender: FDA-Public Use
  Company Number: GB-AMGEN-GBRSP2015108856

PATIENT
  Age: 72 Year
  Sex: Male

DRUGS (5)
  1. XGEVA [Suspect]
     Active Substance: DENOSUMAB
     Indication: METASTASES TO BONE
     Dosage: 120MG/2ML, UNK
     Route: 058
  2. TRAMADOL. [Concomitant]
     Active Substance: TRAMADOL
     Dosage: UNK
  3. ENZALUTAMIDE [Concomitant]
     Active Substance: ENZALUTAMIDE
     Dosage: UNK
     Route: 048
  4. PARACETAMOL [Concomitant]
     Active Substance: ACETAMINOPHEN
     Dosage: UNK
  5. MORPHIN                            /00036302/ [Concomitant]
     Dosage: UNK
     Route: 048

REACTIONS (8)
  - Hot flush [Unknown]
  - Upper limb fracture [Unknown]
  - Fatigue [Unknown]
  - Pollakiuria [Unknown]
  - Back pain [Unknown]
  - Pain in extremity [Recovering/Resolving]
  - Dyspnoea exertional [Unknown]
  - Hypertension [Unknown]

NARRATIVE: CASE EVENT DATE: 2015
